FAERS Safety Report 9418070 (Version 3)
Quarter: 2013Q3

REPORT INFORMATION
  Report Type: Spontaneous
  Country: US (occurrence: US)
  Receive Date: 20130724
  Receipt Date: 20130919
  Transmission Date: 20140515
  Serious: Yes (Hospitalization)
  Sender: FDA-Public Use
  Company Number: US-B.I. PHARMACEUTICALS,INC./RIDGEFIELD-2013-BI-21336BP

PATIENT
  Age: 73 Year
  Sex: Female
  Weight: 86 kg

DRUGS (12)
  1. PRADAXA [Suspect]
     Indication: ATRIAL FIBRILLATION
     Dosage: 300 MG
     Route: 048
     Dates: end: 20130717
  2. AMIODARONE [Concomitant]
     Dosage: 400 MG
     Route: 048
  3. OXYBUTININ [Concomitant]
     Dosage: 5 MG
     Route: 048
  4. EVISTA [Concomitant]
     Dosage: 60 MG
     Route: 048
  5. ZESTORETIC [Concomitant]
     Indication: HYPERTENSION
     Dosage: STRENGTH: 20 MG/12.5 MG; DAILY DOSE: 40 MG/25 MG
     Route: 048
  6. ACTOS [Concomitant]
     Indication: DIABETES MELLITUS
     Dosage: 15 MG
     Route: 048
  7. VITAMIN B12 [Concomitant]
     Dosage: 5000 MCG
     Route: 060
  8. ECOTRIN [Concomitant]
     Dosage: 81 MG
     Route: 048
  9. AUGMENTIN [Concomitant]
     Dosage: 500 MG
     Route: 048
  10. PAXIL CR [Concomitant]
     Dosage: 12.5 MG
     Route: 048
  11. TOPROL XL [Concomitant]
     Dosage: 25 MG
     Route: 048
  12. CALCIUM WITH VITAMIN D [Concomitant]
     Dosage: STRENGTH: 600 MG/400 IU; DAILY DOSE: 1200 MG/800 IU
     Route: 048

REACTIONS (4)
  - Asthenia [Recovered/Resolved]
  - International normalised ratio increased [Not Recovered/Not Resolved]
  - Haemoglobin decreased [Unknown]
  - Retroperitoneal haematoma [Recovered/Resolved]
